FAERS Safety Report 15323297 (Version 8)
Quarter: 2019Q3

REPORT INFORMATION
  Report Type: Report from Study
  Country: US (occurrence: US)
  Receive Date: 20180827
  Receipt Date: 20190712
  Transmission Date: 20191004
  Serious: Yes (Hospitalization)
  Sender: FDA-Public Use
  Company Number: US-ACTELION-A-US2018-175713

PATIENT
  Age: 65 Year
  Sex: Male
  Weight: 69.39 kg

DRUGS (7)
  1. UPTRAVI [Suspect]
     Active Substance: SELEXIPAG
     Indication: PULMONARY ARTERIAL HYPERTENSION
     Dosage: 800 MCG, BID
     Route: 048
  2. OPSUMIT [Suspect]
     Active Substance: MACITENTAN
     Indication: PULMONARY ARTERIAL HYPERTENSION
     Dosage: 10 MG, QD
     Route: 048
     Dates: start: 20180508
  3. UPTRAVI [Suspect]
     Active Substance: SELEXIPAG
     Dosage: 1400 MCG, BID
     Route: 048
  4. UPTRAVI [Suspect]
     Active Substance: SELEXIPAG
     Dosage: 1000 MCG, BID
     Route: 048
  5. UPTRAVI [Suspect]
     Active Substance: SELEXIPAG
     Dosage: 1000 MCG, BID
     Route: 048
  6. AMLODIPINE [Suspect]
     Active Substance: AMLODIPINE BESYLATE
     Indication: PRODUCT USED FOR UNKNOWN INDICATION
     Route: 065
  7. UPTRAVI [Suspect]
     Active Substance: SELEXIPAG
     Dosage: 1200 MCG, BID
     Route: 048

REACTIONS (18)
  - Stomatitis [Unknown]
  - Weight increased [Recovering/Resolving]
  - Epistaxis [Unknown]
  - Dyspnoea [Recovered/Resolved]
  - Diabetes mellitus [Unknown]
  - Rheumatoid arthritis [Unknown]
  - Muscle spasms [Not Recovered/Not Resolved]
  - Fall [Unknown]
  - Osteomyelitis [Unknown]
  - Swelling [Unknown]
  - Headache [Not Recovered/Not Resolved]
  - Oral mucosal exfoliation [Recovering/Resolving]
  - Mouth haemorrhage [Recovering/Resolving]
  - Respiratory disorder [Recovering/Resolving]
  - Fluid retention [Recovering/Resolving]
  - Limb discomfort [Unknown]
  - Product dose omission [Recovered/Resolved]
  - Skin infection [Unknown]

NARRATIVE: CASE EVENT DATE: 20181204
